FAERS Safety Report 9197075 (Version 2)
Quarter: 2013Q2

REPORT INFORMATION
  Report Type: Report from Study
  Country: CA (occurrence: CA)
  Receive Date: 20130328
  Receipt Date: 20130404
  Transmission Date: 20140414
  Serious: Yes (Hospitalization, Other)
  Sender: FDA-Public Use
  Company Number: CA-ROCHE-1205070

PATIENT
  Age: 64 Year
  Sex: Female
  Weight: 87.5 kg

DRUGS (12)
  1. RITUXAN [Suspect]
     Indication: RHEUMATOID ARTHRITIS
     Route: 042
     Dates: start: 20121015
  2. ACETAMINOPHEN [Concomitant]
     Indication: PREMEDICATION
     Route: 048
     Dates: start: 20121015
  3. CLARITIN [Concomitant]
     Indication: PREMEDICATION
     Route: 048
     Dates: start: 20121015
  4. ATENOLOL [Concomitant]
  5. LIPITOR [Concomitant]
  6. NAPROXEN [Concomitant]
  7. SULFASALAZINE [Concomitant]
  8. COZAAR [Concomitant]
  9. ASA (ACETYLSALICYLIC ACID) [Concomitant]
     Route: 065
  10. METHYLPREDNISOLONE [Concomitant]
     Indication: PREMEDICATION
     Route: 042
     Dates: start: 20121015
  11. METHOTREXATE [Concomitant]
  12. FOLIC ACID [Concomitant]

REACTIONS (3)
  - Dyspnoea [Not Recovered/Not Resolved]
  - Oxygen saturation decreased [Not Recovered/Not Resolved]
  - Pneumonia [Unknown]
